FAERS Safety Report 24385719 (Version 1)
Quarter: 2024Q4

REPORT INFORMATION
  Report Type: Spontaneous
  Country: SE (occurrence: SE)
  Receive Date: 20241001
  Receipt Date: 20241001
  Transmission Date: 20250115
  Serious: Yes (Hospitalization)
  Sender: FERRING
  Company Number: None

PATIENT

DRUGS (2)
  1. MINIRIN [Suspect]
     Active Substance: DESMOPRESSIN ACETATE
     Indication: Enuresis
     Dosage: 40 UG
     Route: 045
     Dates: start: 200204, end: 20020611
  2. OXYBUTYNIN [Concomitant]
     Active Substance: OXYBUTYNIN
     Route: 048
     Dates: start: 20020607, end: 20020611

REACTIONS (1)
  - Oliguria [Recovered/Resolved]

NARRATIVE: CASE EVENT DATE: 20020611
